FAERS Safety Report 23964493 (Version 1)
Quarter: 2024Q2

REPORT INFORMATION
  Report Type: Report from Study
  Country: CO (occurrence: CO)
  Receive Date: 20240612
  Receipt Date: 20240612
  Transmission Date: 20240716
  Serious: Yes (Other)
  Sender: FDA-Public Use
  Company Number: CO-ABBVIE-5318337

PATIENT
  Age: 43 Year
  Sex: Female
  Weight: 75 kg

DRUGS (22)
  1. RINVOQ [Suspect]
     Active Substance: UPADACITINIB
     Indication: Rheumatoid arthritis
     Dosage: FORM STRENGTH: 15 MG
     Route: 048
     Dates: start: 20221201
  2. IMPOFLEX [Concomitant]
     Indication: Neck pain
     Dosage: 2 MILLIGRAM
     Route: 048
     Dates: start: 2021
  3. BISOPROLOL [Concomitant]
     Active Substance: BISOPROLOL\BISOPROLOL FUMARATE
     Indication: Arrhythmia
     Dosage: 5 MILLIGRAM
     Route: 048
     Dates: start: 2022
  4. METHOTREXATE [Concomitant]
     Active Substance: METHOTREXATE
     Indication: Disease progression
     Dosage: FORM STRENGTH: 15 MG?FREQUENCY TEXT: SATURDAY AND SUNDAY
     Route: 048
     Dates: start: 2021
  5. CALCIPOTRIENE [Concomitant]
     Active Substance: CALCIPOTRIENE
     Indication: Product used for unknown indication
     Dosage: 0.5 MILLIGRAM
     Route: 048
     Dates: start: 2021
  6. HUMYLUB OFTENO [Concomitant]
     Indication: Dry eye
     Dosage: FREQUENCY TEXT: 2 TIMES PER DAY
     Route: 047
     Dates: start: 2021
  7. PROPAFENONE [Concomitant]
     Active Substance: PROPAFENONE
     Indication: Arrhythmia
     Route: 048
     Dates: start: 2022
  8. DULOXETINE [Concomitant]
     Active Substance: DULOXETINE
     Indication: Depression
     Dosage: 60 MILLIGRAM
     Route: 048
     Dates: start: 2021
  9. ACETAMINOPHEN [Concomitant]
     Active Substance: ACETAMINOPHEN
     Indication: Pain
     Dosage: FREQUENCY TEXT: IN THE MORNING AND AT NIGHT
     Route: 048
     Dates: start: 2020
  10. TIZANIDINE [Concomitant]
     Active Substance: TIZANIDINE
     Indication: Neck pain
     Dosage: 2 MILLIGRAM
     Route: 048
     Dates: start: 2021
  11. FOLIC ACID [Concomitant]
     Active Substance: FOLIC ACID
     Indication: Disease progression
     Dosage: 1 MILLIGRAM
     Route: 048
     Dates: start: 2020
  12. MYLANTA [Concomitant]
     Active Substance: ALUMINUM HYDROXIDE\DIMETHICONE\MAGNESIUM HYDROXIDE
     Indication: Gastritis
     Dosage: NOT REFERRED, AS NEEDED
     Route: 048
     Dates: start: 2020
  13. LACTULOSE-H [Concomitant]
     Indication: Gastritis
     Dosage: 1 SACHET
     Route: 048
     Dates: start: 2022
  14. CHLOROQUINE [Concomitant]
     Active Substance: CHLOROQUINE
     Indication: Product used for unknown indication
     Route: 048
  15. DAIVONEX [Concomitant]
     Active Substance: CALCIPOTRIENE
     Indication: Disease progression
     Dosage: 0.5 MILLIGRAM
     Route: 048
     Dates: start: 2021
  16. PREGABALIN [Concomitant]
     Active Substance: PREGABALIN
     Indication: Pain
     Dosage: 75 MILLIGRAM
     Route: 048
     Dates: start: 2021
  17. IRBESARTAN [Concomitant]
     Active Substance: IRBESARTAN
     Indication: Hypertension
     Route: 048
     Dates: start: 2022
  18. TRAZODONE [Concomitant]
     Active Substance: TRAZODONE HYDROCHLORIDE
     Indication: Depression
     Route: 048
     Dates: start: 2021
  19. PREDNISOLONE [Concomitant]
     Active Substance: PREDNISOLONE
     Indication: Disease progression
     Dosage: 5 MILLIGRAM
     Route: 048
     Dates: start: 2021
  20. AZELASTINE [Concomitant]
     Active Substance: AZELASTINE\AZELASTINE HYDROCHLORIDE
     Indication: Eye allergy
     Dosage: EVERYDAY
     Route: 048
     Dates: start: 2022
  21. AMDIPIN [Concomitant]
     Indication: Hypertension
     Dosage: 1 TABLET
     Route: 048
     Dates: start: 2021
  22. DESLORATADINE EG [Concomitant]
     Indication: Eye allergy
     Dosage: EVERYDAY AT NIGHT
     Dates: start: 2022

REACTIONS (21)
  - Blood pressure increased [Not Recovered/Not Resolved]
  - Crying [Not Recovered/Not Resolved]
  - Anxiety [Not Recovered/Not Resolved]
  - Feeling abnormal [Not Recovered/Not Resolved]
  - Back pain [Not Recovered/Not Resolved]
  - Dizziness [Not Recovered/Not Resolved]
  - Dysstasia [Not Recovered/Not Resolved]
  - Arthralgia [Not Recovered/Not Resolved]
  - Pain in extremity [Not Recovered/Not Resolved]
  - Bone pain [Not Recovered/Not Resolved]
  - Screaming [Not Recovered/Not Resolved]
  - Gait disturbance [Not Recovered/Not Resolved]
  - Feeling cold [Not Recovered/Not Resolved]
  - Mobility decreased [Not Recovered/Not Resolved]
  - Swelling [Not Recovered/Not Resolved]
  - Intervertebral disc disorder [Not Recovered/Not Resolved]
  - Neck pain [Not Recovered/Not Resolved]
  - Arrhythmia [Unknown]
  - Vertigo [Unknown]
  - Musculoskeletal pain [Not Recovered/Not Resolved]
  - Investigation abnormal [Unknown]

NARRATIVE: CASE EVENT DATE: 20230703
